FAERS Safety Report 9330551 (Version 2)
Quarter: 2013Q3

REPORT INFORMATION
  Report Type: Report from Study
  Country: US (occurrence: US)
  Receive Date: 20130605
  Receipt Date: 20130711
  Transmission Date: 20140515
  Serious: Yes (Other)
  Sender: FDA-Public Use
  Company Number: PHEH2012US003456

PATIENT
  Age: 63 Year
  Sex: Female

DRUGS (4)
  1. TASIGNA [Suspect]
     Indication: CHRONIC MYELOID LEUKAEMIA
     Dosage: 400 MG, BID
     Route: 048
     Dates: start: 20111111
  2. TASIGNA [Suspect]
     Dosage: UNK
     Route: 048
     Dates: start: 20121105
  3. TASIGNA [Suspect]
     Dosage: 2 DF, Q12H
     Route: 048
  4. TASIGNA [Suspect]
     Dosage: UNK
     Route: 048
     Dates: start: 20130513

REACTIONS (4)
  - Viral infection [Recovering/Resolving]
  - Infection [Recovered/Resolved]
  - Intervertebral disc protrusion [Unknown]
  - Pain [Unknown]
